FAERS Safety Report 8073194-7 (Version None)
Quarter: 2012Q1

REPORT INFORMATION
  Report Type: 
  Country: None (occurrence: None)
  Receive Date: 20120126
  Receipt Date: 20120113
  Transmission Date: 20120608
  Serious: Yes (Disabling)
  Sender: FDA-Public Use
  Company Number: US-ELI_LILLY_AND_COMPANY-US201112001098

PATIENT
  Sex: Female
  Weight: 59.864 kg

DRUGS (9)
  1. FORTEO [Suspect]
     Dosage: 20 UG, QD
     Route: 058
     Dates: end: 20110107
  2. FORTEO [Suspect]
     Dosage: 20 UG, QD
     Route: 058
     Dates: end: 20110817
  3. OXYCONTIN [Concomitant]
     Dosage: 20 MG, BID
  4. EFFEXOR [Concomitant]
  5. VALIUM [Concomitant]
  6. HYDROMORPHONE HCL [Concomitant]
  7. LEXAPRO [Concomitant]
  8. FORTEO [Suspect]
     Indication: OSTEOPOROSIS
     Dosage: 20 UG, QD
     Route: 058
     Dates: start: 20100929
  9. FORTEO [Suspect]
     Dosage: 20 UG, QD
     Route: 058
     Dates: start: 20110121

REACTIONS (4)
  - RIB DEFORMITY [None]
  - ARTHROPATHY [None]
  - BONE PAIN [None]
  - MUSCLE SPASMS [None]
